FAERS Safety Report 24137427 (Version 1)
Quarter: 2024Q3

REPORT INFORMATION
  Report Type: Spontaneous
  Country: FR (occurrence: FR)
  Receive Date: 20240725
  Receipt Date: 20240725
  Transmission Date: 20241017
  Serious: Yes (Other)
  Sender: GUERBET
  Company Number: None

PATIENT
  Age: 42 Year
  Sex: Female
  Weight: 70 kg

DRUGS (1)
  1. DOTAREM [Suspect]
     Active Substance: GADOTERATE MEGLUMINE
     Indication: Scan
     Route: 042
     Dates: start: 20230328, end: 20230328

REACTIONS (1)
  - Skin exfoliation [Recovering/Resolving]

NARRATIVE: CASE EVENT DATE: 20230329
